FAERS Safety Report 8160214-4 (Version None)
Quarter: 2012Q1

REPORT INFORMATION
  Report Type: 
  Country: None (occurrence: None)
  Receive Date: 20120223
  Receipt Date: 20120216
  Transmission Date: 20120608
  Serious: Yes (Hospitalization)
  Sender: FDA-Public Use
  Company Number: US-PFIZER INC-2011277507

PATIENT
  Sex: Female
  Weight: 59.4 kg

DRUGS (17)
  1. CIPROFLOXACIN [Concomitant]
     Dosage: 1000MG/10ML (2 IN 1 D)
  2. RANITIDINE [Suspect]
     Indication: ULCER
     Dosage: 150 MG, 2X/DAY
     Dates: end: 20090828
  3. ACTONEL [Concomitant]
     Indication: OSTEOPOROSIS
     Dosage: 35 MG, 1 IN 1 WEEK
     Dates: start: 20060523
  4. ASPIRIN [Concomitant]
     Indication: ARTHRALGIA
  5. ZOFRAN [Suspect]
     Indication: NAUSEA
     Dosage: 1 DOSAGE FORMS, EVERY 6 HRS
     Route: 048
     Dates: end: 20090828
  6. EXTRA STRENGTH TYLENOL [Concomitant]
     Dosage: 500 MG, AS NEEDED
     Route: 048
  7. LORTAB [Suspect]
     Dosage: 1 DOSAGE FORMS, EVERY 6 HOURS
     Dates: start: 20090825, end: 20090828
  8. COLACE [Suspect]
     Indication: CONSTIPATION
     Dosage: 100 MG, 2X/DAY
     Dates: start: 20090402, end: 20090828
  9. FERGON [Suspect]
     Indication: IRON DEFICIENCY
     Dosage: 325 MG, 2X/DAY
     Route: 048
     Dates: start: 20090227, end: 20090828
  10. SUNITINIB MALATE [Suspect]
     Indication: RENAL CANCER
     Dosage: 50 MG, 2X/DAY
     Route: 048
     Dates: start: 20090601, end: 20090828
  11. MEGACE [Suspect]
     Indication: APPETITE DISORDER
     Dosage: UNK
     Route: 048
  12. PIOGLITAZONE HYDROCHLORIDE [Suspect]
     Indication: DIABETES MELLITUS
     Dosage: 30 MG, 1X/DAY
     Route: 048
     Dates: start: 20070604
  13. ARTIFICIAL TEARS [Concomitant]
     Indication: DRY EYE
     Dosage: 4GTT
     Route: 047
     Dates: start: 20090309
  14. LORTAB [Suspect]
     Indication: ANALGESIC THERAPY
     Dosage: 1 DOSAGE FORMS, EVERY 6 HOURS
     Dates: start: 20090402, end: 20090629
  15. SIMVASTATIN [Suspect]
     Indication: BLOOD CHOLESTEROL
     Dosage: 40 MG, 2X/DAY
     Route: 048
     Dates: start: 20090227, end: 20090828
  16. ASPIRIN [Concomitant]
     Indication: PAIN IN EXTREMITY
     Dosage: 81 MG, 1 IN 1 D
     Dates: end: 20090828
  17. ASPIRIN [Concomitant]
     Indication: HYPERTENSION

REACTIONS (6)
  - VOMITING [None]
  - ABDOMINAL PAIN [None]
  - MALAISE [None]
  - HEADACHE [None]
  - COGNITIVE DISORDER [None]
  - FATIGUE [None]
